FAERS Safety Report 12200608 (Version 1)
Quarter: 2016Q1

REPORT INFORMATION
  Report Type: Spontaneous
  Country: US (occurrence: US)
  Receive Date: 20160322
  Receipt Date: 20160322
  Transmission Date: 20160526
  Serious: No
  Sender: FDA-Public Use
  Company Number: US-SA-2015SA138044

PATIENT
  Age: 83 Year
  Sex: Female

DRUGS (4)
  1. LEUKINE [Suspect]
     Active Substance: SARGRAMOSTIM
     Indication: NEUTROPENIA
     Route: 042
     Dates: start: 20150907, end: 20150907
  2. LEUKINE [Suspect]
     Active Substance: SARGRAMOSTIM
     Indication: NEUTROPENIA
     Route: 058
     Dates: start: 20150908
  3. ZOSYN [Concomitant]
     Active Substance: PIPERACILLIN SODIUM\TAZOBACTAM SODIUM
  4. LEVAQUIN [Concomitant]
     Active Substance: LEVOFLOXACIN

REACTIONS (1)
  - Rash generalised [Not Recovered/Not Resolved]

NARRATIVE: CASE EVENT DATE: 20150909
